FAERS Safety Report 9797266 (Version 3)
Quarter: 2014Q2

REPORT INFORMATION
  Report Type: Spontaneous
  Country: JP (occurrence: None)
  Receive Date: 20131230
  Receipt Date: 20140414
  Transmission Date: 20141212
  Serious: Yes (Congenital Anomaly)
  Sender: FDA-Public Use
  Company Number: JP-20130113

PATIENT
  Sex: 0
  Weight: 3.7 kg

DRUGS (1)
  1. LIPIODOL ULTRA FLUID [Suspect]
     Indication: FOETAL EXPOSURE DURING PREGNANCY
     Route: 064
     Dates: start: 20100422

REACTIONS (4)
  - Goitre congenital [None]
  - Blood thyroid stimulating hormone increased [None]
  - Maternal drugs affecting foetus [None]
  - Caesarean section [None]
